FAERS Safety Report 18821779 (Version 3)
Quarter: 2021Q1

REPORT INFORMATION
  Report Type: Report from Study
  Country: HU (occurrence: HU)
  Receive Date: 20210202
  Receipt Date: 20210302
  Transmission Date: 20210419
  Serious: Yes (Other)
  Sender: FDA-Public Use
  Company Number: NVSC2021HU020117

PATIENT
  Age: 67 Year
  Sex: Male
  Weight: 85 kg

DRUGS (4)
  1. MYFORTIC [Suspect]
     Active Substance: MYCOPHENOLATE SODIUM
     Dosage: 540 MG, BID
     Route: 048
  2. MYFORTIC [Suspect]
     Active Substance: MYCOPHENOLATE SODIUM
     Dosage: 360 MG, BID (FOR 5 DAYS)
     Route: 048
  3. ADVAGRAF [Concomitant]
     Active Substance: TACROLIMUS
     Indication: RENAL TRANSPLANT
     Dosage: 3.5 MG, QD
     Route: 048
     Dates: start: 2019
  4. MYFORTIC [Suspect]
     Active Substance: MYCOPHENOLATE SODIUM
     Indication: RENAL TRANSPLANT
     Dosage: 540 MG, BID
     Route: 048
     Dates: start: 2019

REACTIONS (5)
  - Diarrhoea [Recovered/Resolved]
  - Anxiety disorder [Unknown]
  - Hypertension [Unknown]
  - Arrhythmia [Unknown]
  - Diarrhoea [Unknown]

NARRATIVE: CASE EVENT DATE: 20210122
